APPROVED DRUG PRODUCT: TRIENTINE HYDROCHLORIDE
Active Ingredient: TRIENTINE HYDROCHLORIDE
Strength: 250MG
Dosage Form/Route: CAPSULE;ORAL
Application: A212929 | Product #001
Applicant: ACCORD HEALTHCARE INC
Approved: Aug 30, 2021 | RLD: No | RS: No | Type: DISCN